FAERS Safety Report 25000204 (Version 1)
Quarter: 2025Q1

REPORT INFORMATION
  Report Type: Spontaneous
  Country: US (occurrence: US)
  Receive Date: 20250222
  Receipt Date: 20250222
  Transmission Date: 20250409
  Serious: No
  Sender: SANOFI AVENTIS
  Company Number: US-SA-2025SA050466

PATIENT
  Sex: Female

DRUGS (2)
  1. SUTIMLIMAB [Suspect]
     Active Substance: SUTIMLIMAB
     Dosage: QOW
     Route: 042
  2. SUTIMLIMAB [Suspect]
     Active Substance: SUTIMLIMAB
     Dosage: Q6W
     Route: 042

REACTIONS (1)
  - Off label use [Unknown]
